FAERS Safety Report 24986548 (Version 2)
Quarter: 2025Q2

REPORT INFORMATION
  Report Type: Spontaneous
  Country: GB (occurrence: GB)
  Receive Date: 20250219
  Receipt Date: 20250407
  Transmission Date: 20250717
  Serious: Yes (Other)
  Sender: TORRENT
  Company Number: None

PATIENT
  Age: 45 Year
  Sex: Female
  Weight: 85 kg

DRUGS (4)
  1. TOPIRAMATE [Suspect]
     Active Substance: TOPIRAMATE
     Indication: Product used for unknown indication
     Route: 065
     Dates: start: 20250115, end: 20250203
  2. OMEPRAZOLE [Concomitant]
     Active Substance: OMEPRAZOLE
     Indication: Product used for unknown indication
     Route: 065
  3. PROPRANOLOL [Concomitant]
     Active Substance: PROPRANOLOL HYDROCHLORIDE
     Indication: Product used for unknown indication
     Route: 065
     Dates: start: 20250115, end: 20250115
  4. TOPIRAMATE [Concomitant]
     Active Substance: TOPIRAMATE
     Indication: Product used for unknown indication
     Route: 065
     Dates: start: 20250115

REACTIONS (3)
  - Urinary incontinence [Recovered/Resolved]
  - Micturition urgency [Unknown]
  - Dysuria [Unknown]

NARRATIVE: CASE EVENT DATE: 20250130
